FAERS Safety Report 18419334 (Version 1)
Quarter: 2020Q4

REPORT INFORMATION
  Report Type: Spontaneous
  Country: US (occurrence: US)
  Receive Date: 20201023
  Receipt Date: 20201023
  Transmission Date: 20210114
  Serious: Yes (Hospitalization)
  Sender: FDA-Public Use
  Company Number: None

PATIENT
  Sex: Female

DRUGS (12)
  1. DICLOFENAC [Concomitant]
     Active Substance: DICLOFENAC
     Dates: start: 20200317
  2. FOLIC ACID. [Concomitant]
     Active Substance: FOLIC ACID
     Dates: start: 20200805
  3. OXYBUTYNIN. [Concomitant]
     Active Substance: OXYBUTYNIN CHLORIDE
     Dates: start: 20200508
  4. PANTOPRAZOLE [Concomitant]
     Active Substance: PANTOPRAZOLE
     Dates: start: 20200309
  5. CHLORHEX GLU SOL [Concomitant]
     Dates: start: 20200929
  6. METHOTREXATE. [Concomitant]
     Active Substance: METHOTREXATE
     Dates: start: 20200512
  7. ALLOPURINOL. [Concomitant]
     Active Substance: ALLOPURINOL
     Dates: start: 20200916
  8. HUMIRA [Suspect]
     Active Substance: ADALIMUMAB
     Dosage: ?          OTHER FREQUENCY:EVERY 2 WEEKS;?
     Route: 058
     Dates: start: 20191012
  9. CEVIMELINE. [Concomitant]
     Active Substance: CEVIMELINE
     Dates: start: 20200507
  10. PREDNISONE. [Concomitant]
     Active Substance: PREDNISONE
     Dates: start: 20200916
  11. DULOXETINE. [Concomitant]
     Active Substance: DULOXETINE
     Dates: start: 20200917
  12. CYCLOBENZAPRINE. [Concomitant]
     Active Substance: CYCLOBENZAPRINE
     Dates: start: 20200828

REACTIONS (2)
  - Therapy interrupted [None]
  - COVID-19 [None]
